FAERS Safety Report 8909277 (Version 2)
Quarter: 2013Q1

REPORT INFORMATION
  Report Type: Spontaneous
  Country: CA (occurrence: None)
  Receive Date: 20121107
  Receipt Date: 20121227
  Transmission Date: 20140127
  Serious: Yes (Other)
  Sender: FDA-Public Use
  Company Number: 2012-003892

PATIENT
  Age: 45 Year
  Sex: Male
  Weight: 82 kg

DRUGS (3)
  1. ASACOL [Suspect]
     Indication: COLITIS ULCERATIVE
     Route: 048
     Dates: start: 20091027, end: 20120220
  2. FUROSEMIDE (FUROSEMIDE) [Concomitant]
  3. AMLODIPINE (AMLODIPINE) [Concomitant]

REACTIONS (2)
  - Renal failure chronic [None]
  - Tubulointerstitial nephritis [None]
